FAERS Safety Report 4563847-7 (Version None)
Quarter: 2005Q1

REPORT INFORMATION
  Report Type: 
  Country: None (occurrence: None)
  Receive Date: 20050128
  Receipt Date: 20041013
  Transmission Date: 20050727
  Serious: No
  Sender: FDA-Public Use
  Company Number: US-GLAXOSMITHKLINE-A0529706A

PATIENT
  Age: 44 Year
  Sex: Male

DRUGS (13)
  1. LEXIVA [Suspect]
     Indication: HIV INFECTION
     Dosage: 1400MG TWICE PER DAY
     Route: 048
     Dates: start: 20040601
  2. LIPITOR [Concomitant]
  3. VIREAD [Concomitant]
  4. VIDEX EC [Concomitant]
  5. ACYCLOVIR [Concomitant]
  6. ACCUPRIL [Concomitant]
  7. SEREVENT [Concomitant]
  8. ASMACORT [Concomitant]
  9. PRILOSEC [Concomitant]
  10. KETOPROFEN [Concomitant]
  11. DIFLUCAN [Concomitant]
  12. INFLUENZA VACCINE [Concomitant]
  13. PNEUMOVAX 23 [Concomitant]

REACTIONS (2)
  - FATIGUE [None]
  - MYALGIA [None]
